FAERS Safety Report 12658416 (Version 2)
Quarter: 2016Q4

REPORT INFORMATION
  Report Type: Spontaneous
  Country: GB (occurrence: GB)
  Receive Date: 20160817
  Receipt Date: 20161007
  Transmission Date: 20170207
  Serious: Yes (Hospitalization, Other)
  Sender: FDA-Public Use
  Company Number: GB-ACCORD-043144

PATIENT
  Age: 69 Year
  Sex: Female

DRUGS (10)
  1. ALLOPURINOL. [Suspect]
     Active Substance: ALLOPURINOL
     Indication: GOUT
     Dosage: 100MG, 2 TABLETS ONCE DAILY FROM PAST 16 YEARS
     Route: 048
     Dates: start: 2002
  2. ANASTROZOLE. [Concomitant]
     Active Substance: ANASTROZOLE
  3. ALLOPURINOL. [Suspect]
     Active Substance: ALLOPURINOL
     Indication: GOUT
     Route: 048
     Dates: start: 20160417, end: 20160508
  4. VERAPAMIL [Concomitant]
     Active Substance: VERAPAMIL HYDROCHLORIDE
  5. PARACETAMOL [Concomitant]
     Active Substance: ACETAMINOPHEN
  6. SIMVASTATIN. [Concomitant]
     Active Substance: SIMVASTATIN
  7. ALPHOSYL [Concomitant]
  8. DABIGATRAN/DABIGATRAN ETEXILATE [Concomitant]
  9. DOXAZOSIN [Concomitant]
     Active Substance: DOXAZOSIN\DOXAZOSIN MESYLATE
  10. OMEPRAZOLE. [Concomitant]
     Active Substance: OMEPRAZOLE

REACTIONS (11)
  - Drug dispensing error [Unknown]
  - Gout [Not Recovered/Not Resolved]
  - Arthralgia [Unknown]
  - Skin exfoliation [Not Recovered/Not Resolved]
  - Oedema peripheral [Not Recovered/Not Resolved]
  - Atrial fibrillation [Not Recovered/Not Resolved]
  - Condition aggravated [Not Recovered/Not Resolved]
  - Skin fissures [Not Recovered/Not Resolved]
  - Lymphadenopathy [Unknown]
  - Erythema [Not Recovered/Not Resolved]
  - Alopecia [Not Recovered/Not Resolved]

NARRATIVE: CASE EVENT DATE: 20160508
